FAERS Safety Report 23639578 (Version 2)
Quarter: 2024Q2

REPORT INFORMATION
  Report Type: Spontaneous
  Country: CA (occurrence: CA)
  Receive Date: 20240316
  Receipt Date: 20240412
  Transmission Date: 20240716
  Serious: Yes (Other)
  Sender: FDA-Public Use
  Company Number: CA-CELLTRION INC.-2024CA006232

PATIENT

DRUGS (6)
  1. INFLECTRA [Suspect]
     Active Substance: INFLIXIMAB-DYYB
     Indication: Colitis ulcerative
     Dosage: 400 MG W0 (HOSPITAL START), W2, W6 AND THEN EVERY 8 WEEKS
     Route: 042
     Dates: start: 20230927
  2. INFLECTRA [Suspect]
     Active Substance: INFLIXIMAB-DYYB
     Dosage: 10MG/KG W2 ONLY, RETURN TO 400MG FOR W6 AND EVERY 8 WEEKS
     Route: 042
     Dates: start: 20231011, end: 20240110
  3. INFLECTRA [Suspect]
     Active Substance: INFLIXIMAB-DYYB
     Dosage: 800 MG EVERY 4 WEEKS
     Route: 042
     Dates: start: 20240207
  4. INFLECTRA [Suspect]
     Active Substance: INFLIXIMAB-DYYB
     Dosage: 800 MG, 4 WEEKS AND 3 DAYS (PRESCRIBED EVERY 4 WEEKS)
     Route: 042
     Dates: start: 20240309
  5. INFLECTRA [Suspect]
     Active Substance: INFLIXIMAB-DYYB
     Dosage: 800 MG, AFTER 3 WEEKS AND 5 DAYS (PRESCRIBED EVERY 4 WEEKS)
     Route: 042
     Dates: start: 20240404
  6. PREDNISONE [Concomitant]
     Active Substance: PREDNISONE
     Dosage: 1 DF
     Dates: start: 20231002

REACTIONS (13)
  - Diarrhoea haemorrhagic [Recovering/Resolving]
  - Weight decreased [Unknown]
  - Condition aggravated [Recovered/Resolved]
  - Asthenia [Not Recovered/Not Resolved]
  - Balance disorder [Not Recovered/Not Resolved]
  - Dyspnoea [Not Recovered/Not Resolved]
  - Eating disorder [Not Recovered/Not Resolved]
  - Malaise [Not Recovered/Not Resolved]
  - Nausea [Not Recovered/Not Resolved]
  - Pyrexia [Not Recovered/Not Resolved]
  - Decreased appetite [Unknown]
  - Off label use [Unknown]
  - Off label use [Unknown]

NARRATIVE: CASE EVENT DATE: 20240201
